FAERS Safety Report 20563315 (Version 1)
Quarter: 2022Q1

REPORT INFORMATION
  Report Type: Report from Study
  Country: CA (occurrence: CA)
  Receive Date: 20220308
  Receipt Date: 20220308
  Transmission Date: 20220423
  Serious: Yes (Other)
  Sender: FDA-Public Use
  Company Number: CA-ABBVIE-22K-028-4304389-00

PATIENT
  Sex: Female

DRUGS (1)
  1. RINVOQ [Suspect]
     Active Substance: UPADACITINIB
     Indication: Rheumatoid arthritis
     Route: 048
     Dates: start: 20200224

REACTIONS (5)
  - Surgery [Unknown]
  - Post procedural complication [Unknown]
  - Back disorder [Not Recovered/Not Resolved]
  - Spinal disorder [Unknown]
  - Pelvic deformity [Unknown]
